FAERS Safety Report 10092587 (Version 1)
Quarter: 2014Q2

REPORT INFORMATION
  Report Type: Spontaneous
  Country: US (occurrence: US)
  Receive Date: 20140421
  Receipt Date: 20140421
  Transmission Date: 20141212
  Serious: No
  Sender: FDA-Public Use
  Company Number: US-SANOFI-AVENTIS-2013SA057752

PATIENT
  Age: 42 Year
  Sex: Female
  Weight: 108 kg

DRUGS (2)
  1. ALLEGRA [Suspect]
     Indication: SEASONAL ALLERGY
     Dosage: TAKEN FROM - TWO WEEKS AGO, TAKEN TO- 5 DAYS LATER
     Route: 065
     Dates: start: 20130517, end: 20130521
  2. ALLEGRA [Suspect]
     Indication: SEASONAL ALLERGY
     Dosage: TAKEN FROM - TWO WEEKS AGO, TAKEN TO- 5 DAYS LATER
     Route: 065
     Dates: start: 20130517, end: 20130521

REACTIONS (2)
  - Condition aggravated [Not Recovered/Not Resolved]
  - Drug ineffective [Unknown]
